FAERS Safety Report 19383599 (Version 1)
Quarter: 2021Q2

REPORT INFORMATION
  Report Type: Spontaneous
  Country: TR (occurrence: TR)
  Receive Date: 20210607
  Receipt Date: 20210607
  Transmission Date: 20210717
  Serious: Yes (Hospitalization)
  Sender: FDA-Public Use
  Company Number: TR-NOVOPROD-817400

PATIENT
  Sex: Male
  Weight: 3.75 kg

DRUGS (2)
  1. NOVORAPID [Suspect]
     Active Substance: INSULIN ASPART
     Indication: GESTATIONAL DIABETES
     Dosage: THE PATIENT^S MOTHER STATED THAT SHE STOPPED USING INSULIN AFTER BIRTH.
     Route: 064
  2. LEVEMIR [Suspect]
     Active Substance: INSULIN DETEMIR
     Indication: GESTATIONAL DIABETES
     Dosage: THE PATIENT^S MOTHER STATED THAT SHE STOPPED USING INSULIN AFTER BIRTH.
     Route: 064

REACTIONS (3)
  - Jaundice neonatal [Recovered/Resolved]
  - Foetal exposure during pregnancy [Recovered/Resolved]
  - Pulmonary oedema neonatal [Recovered/Resolved]
